FAERS Safety Report 4497059-2 (Version None)
Quarter: 2004Q3

REPORT INFORMATION
  Report Type: 
  Country: None (occurrence: None)
  Receive Date: 20040927
  Receipt Date: 20040602
  Transmission Date: 20050211
  Serious: No
  Sender: FDA-Public Use
  Company Number: USA040465752

PATIENT
  Age: 7 Year
  Sex: Female
  Weight: 19 kg

DRUGS (2)
  1. STRATTERA [Suspect]
     Indication: ATTENTION DEFICIT/HYPERACTIVITY DISORDER
     Dosage: 40 MG
     Dates: start: 20040416, end: 20040420
  2. CONCERTA [Concomitant]

REACTIONS (7)
  - ANXIETY [None]
  - CRYING [None]
  - DELUSION [None]
  - DEPRESSION [None]
  - FORMICATION [None]
  - PRESCRIBED OVERDOSE [None]
  - SOCIAL AVOIDANT BEHAVIOUR [None]
